FAERS Safety Report 25205937 (Version 1)
Quarter: 2025Q2

REPORT INFORMATION
  Report Type: Spontaneous
  Country: AU (occurrence: AU)
  Receive Date: 20250417
  Receipt Date: 20250417
  Transmission Date: 20250717
  Serious: Yes (Other)
  Sender: Alvotech
  Company Number: None

PATIENT
  Age: 17 Year

DRUGS (1)
  1. ADALIMUMAB [Suspect]
     Active Substance: ADALIMUMAB
     Indication: Iridocyclitis
     Route: 058

REACTIONS (2)
  - Glaucoma [Unknown]
  - Cataract [Unknown]
